FAERS Safety Report 14569180 (Version 3)
Quarter: 2018Q3

REPORT INFORMATION
  Report Type: Report from Study
  Country: None (occurrence: IL)
  Receive Date: 20180223
  Receipt Date: 20180919
  Transmission Date: 20181010
  Serious: Yes (Hospitalization)
  Sender: FDA-Public Use
  Company Number: IL-ABBVIE-18P-082-2262248-00

PATIENT
  Age: 18 Year
  Sex: Male
  Weight: 57 kg

DRUGS (11)
  1. HUMIRA [Suspect]
     Active Substance: ADALIMUMAB
     Indication: CROHN^S DISEASE
     Route: 058
     Dates: start: 20160315
  2. HUMIRA [Suspect]
     Active Substance: ADALIMUMAB
     Route: 058
     Dates: start: 20180201
  3. NEVANAC [Concomitant]
     Active Substance: NEPAFENAC
     Route: 047
     Dates: start: 20180131
  4. MOXIFLOXACIN. [Concomitant]
     Active Substance: MOXIFLOXACIN
     Route: 047
     Dates: start: 20180123, end: 20180130
  5. NEVANAC [Concomitant]
     Active Substance: NEPAFENAC
     Indication: CATARACT OPERATION
     Route: 047
     Dates: start: 20180109, end: 20180129
  6. HUMIRA [Suspect]
     Active Substance: ADALIMUMAB
     Route: 058
     Dates: start: 20171214, end: 20180626
  7. NEVANAC [Concomitant]
     Active Substance: NEPAFENAC
     Route: 047
     Dates: start: 20180125, end: 20180130
  8. MOXIFLOXACIN. [Concomitant]
     Active Substance: MOXIFLOXACIN
     Indication: ANTIINFLAMMATORY THERAPY
     Route: 047
     Dates: start: 20180117, end: 20180122
  9. HUMIRA [Suspect]
     Active Substance: ADALIMUMAB
     Route: 058
     Dates: start: 20180111, end: 20180126
  10. DEXAMETHASONE. [Concomitant]
     Active Substance: DEXAMETHASONE
     Indication: ANTIINFLAMMATORY THERAPY
     Route: 047
     Dates: start: 20180117, end: 20180122
  11. DEXAMETHASONE. [Concomitant]
     Active Substance: DEXAMETHASONE
     Route: 047
     Dates: start: 20180123, end: 20180130

REACTIONS (1)
  - Hypotony of eye [Recovered/Resolved]

NARRATIVE: CASE EVENT DATE: 20180124
